FAERS Safety Report 8025678-5 (Version None)
Quarter: 2012Q1

REPORT INFORMATION
  Report Type: 
  Country: None (occurrence: None)
  Receive Date: 20120105
  Receipt Date: 20111229
  Transmission Date: 20120608
  Serious: Yes (Other)
  Sender: FDA-Public Use
  Company Number: US-ALLERGAN-1116970US

PATIENT
  Sex: Male

DRUGS (1)
  1. OZURDEX [Suspect]
     Indication: PRODUCT USED FOR UNKNOWN INDICATION
     Dosage: UNK
     Dates: start: 20110101, end: 20110101

REACTIONS (4)
  - VISUAL ACUITY REDUCED [None]
  - CORNEAL OEDEMA [None]
  - SKIN STRIAE [None]
  - CILIARY ZONULAR DEHISCENCE [None]
